FAERS Safety Report 25898736 (Version 5)
Quarter: 2025Q4

REPORT INFORMATION
  Report Type: Spontaneous
  Country: AR (occurrence: AR)
  Receive Date: 20251009
  Receipt Date: 20251226
  Transmission Date: 20260117
  Serious: Yes (Hospitalization, Other)
  Sender: ROCHE
  Company Number: AR-002147023-NVSC2025AR093823

PATIENT
  Age: 41 Year
  Sex: Female

DRUGS (5)
  1. XOLAIR [Suspect]
     Active Substance: OMALIZUMAB
     Indication: Asthma
     Route: 058
     Dates: start: 20250602, end: 202508
  2. XOLAIR [Suspect]
     Active Substance: OMALIZUMAB
     Route: 058
     Dates: start: 202506
  3. SERETIDE [Concomitant]
     Active Substance: FLUTICASONE PROPIONATE\SALMETEROL XINAFOATE
     Indication: Product used for unknown indication
  4. TRELEGY ELLIPTA [Concomitant]
     Active Substance: FLUTICASONE FUROATE\UMECLIDINIUM BROMIDE\VILANTEROL TRIFENATATE
     Indication: Product used for unknown indication
  5. LUKAST [MONTELUKAST SODIUM] [Concomitant]
     Indication: Product used for unknown indication

REACTIONS (17)
  - Pneumonia [Recovered/Resolved]
  - Malaise [Unknown]
  - Condition aggravated [Recovered/Resolved]
  - Myalgia [Recovering/Resolving]
  - Pyrexia [Recovered/Resolved]
  - Application site hypersensitivity [Recovered/Resolved]
  - Application site pain [Recovered/Resolved]
  - Bronchitis [Recovered/Resolved]
  - Bronchospasm [Recovered/Resolved]
  - Scar [Unknown]
  - Ocular hyperaemia [Recovered/Resolved]
  - Aphonia [Recovered/Resolved]
  - Skin discolouration [Recovered/Resolved]
  - Ocular discomfort [Recovered/Resolved]
  - Headache [Recovered/Resolved]
  - Rhinitis [Recovered/Resolved]
  - Oxygen saturation decreased [Recovered/Resolved]

NARRATIVE: CASE EVENT DATE: 20250602
